FAERS Safety Report 10221315 (Version 1)
Quarter: 2014Q2

REPORT INFORMATION
  Report Type: Spontaneous
  Country: US (occurrence: US)
  Receive Date: 20140606
  Receipt Date: 20140606
  Transmission Date: 20141212
  Serious: No
  Sender: FDA-Public Use
  Company Number: US-GLAXOSMITHKLINE-A1071750A

PATIENT
  Age: 72 Year
  Sex: Male
  Weight: 79.1 kg

DRUGS (5)
  1. BREO ELLIPTA [Suspect]
     Indication: CHRONIC OBSTRUCTIVE PULMONARY DISEASE
     Dosage: 1PUFF PER DAY
     Route: 055
     Dates: start: 201404, end: 20140430
  2. PROVENTIL [Concomitant]
  3. SPIRIVA [Concomitant]
  4. SIMVASTATIN [Concomitant]
  5. ASA [Concomitant]

REACTIONS (8)
  - Rash [Recovered/Resolved]
  - Urticaria [Recovered/Resolved]
  - Urticaria [Recovered/Resolved]
  - Drug ineffective [Recovered/Resolved]
  - Drug interaction [Unknown]
  - Drug hypersensitivity [Unknown]
  - Ill-defined disorder [Unknown]
  - Environmental exposure [Unknown]
